FAERS Safety Report 11496625 (Version 2)
Quarter: 2015Q4

REPORT INFORMATION
  Report Type: Spontaneous
  Country: US (occurrence: US)
  Receive Date: 20150911
  Receipt Date: 20151124
  Transmission Date: 20160304
  Serious: Yes (Hospitalization)
  Sender: FDA-Public Use
  Company Number: US-JNJFOC-20150816311

PATIENT
  Age: 52 Year
  Sex: Male
  Weight: 102.06 kg

DRUGS (7)
  1. ACETAMINOPHEN. [Concomitant]
     Active Substance: ACETAMINOPHEN
     Route: 065
  2. ALBUTEROL. [Concomitant]
     Active Substance: ALBUTEROL
     Route: 065
  3. SODIUM CHLORIDE. [Concomitant]
     Active Substance: SODIUM CHLORIDE
     Route: 065
  4. NICOTINE. [Concomitant]
     Active Substance: NICOTINE
     Route: 065
  5. PANTOPRAZOLE [Concomitant]
     Active Substance: PANTOPRAZOLE SODIUM
     Route: 065
  6. XARELTO [Suspect]
     Active Substance: RIVAROXABAN
     Indication: PRODUCT USED FOR UNKNOWN INDICATION
     Route: 048
     Dates: start: 2012, end: 201305
  7. NICOTINE. [Concomitant]
     Active Substance: NICOTINE
     Route: 065

REACTIONS (2)
  - Upper gastrointestinal haemorrhage [Unknown]
  - Haemorrhage [Unknown]

NARRATIVE: CASE EVENT DATE: 20121121
